FAERS Safety Report 4511993-6 (Version None)
Quarter: 2004Q4

REPORT INFORMATION
  Report Type: 
  Country: None (occurrence: None)
  Receive Date: 20041129
  Receipt Date: 20040407
  Transmission Date: 20050328
  Serious: No
  Sender: FDA-Public Use
  Company Number: US-BRISTOL-MYERS SQUIBB COMPANY-12555371

PATIENT
  Sex: Male

DRUGS (2)
  1. SUSTIVA [Suspect]
     Indication: HIV INFECTION
     Route: 048
  2. REMERON [Interacting]

REACTIONS (3)
  - DRUG INTERACTION [None]
  - POISONING [None]
  - VISUAL DISTURBANCE [None]
